FAERS Safety Report 7524366-9 (Version None)
Quarter: 2011Q2

REPORT INFORMATION
  Report Type: 
  Country: None (occurrence: None)
  Receive Date: 20110606
  Receipt Date: 20110527
  Transmission Date: 20111010
  Serious: Yes (Hospitalization)
  Sender: FDA-Public Use
  Company Number: US-BRISTOL-MYERS SQUIBB COMPANY-15773112

PATIENT
  Age: 70 Year
  Sex: Female
  Weight: 70 kg

DRUGS (9)
  1. PACLITAXEL [Suspect]
     Indication: NON-SMALL CELL LUNG CANCER
     Dosage: NO OF INF: 6
     Route: 042
     Dates: start: 20090819, end: 20091202
  2. PRAVACHOL [Concomitant]
  3. LANTUS [Concomitant]
  4. CETUXIMAB [Suspect]
     Indication: NON-SMALL CELL LUNG CANCER
     Dosage: INTERRUPTED ON 27JAN10-06FEB10,RESTARTED ON 17FEB10,NO OF INF: 20
     Route: 042
     Dates: start: 20090819
  5. OXYGEN [Concomitant]
     Indication: CHRONIC OBSTRUCTIVE PULMONARY DISEASE
     Route: 055
     Dates: start: 20000101
  6. UNIVASC [Concomitant]
  7. HYOSCYAMINE SULFATE [Concomitant]
  8. INSULIN [Concomitant]
     Indication: DIABETES MELLITUS
     Dosage: SLIDING SCALE
     Route: 065
  9. CARBOPLATIN [Suspect]
     Indication: NON-SMALL CELL LUNG CANCER
     Dosage: NO OF INF: 6
     Route: 042
     Dates: start: 20090819, end: 20091202

REACTIONS (2)
  - TRANSIENT ISCHAEMIC ATTACK [None]
  - MENTAL STATUS CHANGES [None]
